FAERS Safety Report 5354896-X (Version None)
Quarter: 2007Q2

REPORT INFORMATION
  Report Type: 
  Country: None (occurrence: None)
  Receive Date: 20070611
  Receipt Date: 20070529
  Transmission Date: 20071010
  Serious: Yes (Hospitalization)
  Sender: FDA-Public Use
  Company Number: 2007-02615

PATIENT
  Age: 78 Year
  Sex: Female

DRUGS (18)
  1. HYDROCODONE BITARTRATE/ACETAMINOPHEN UNKNOWN STRENGTH (WATSON)(HYDROCO [Suspect]
     Indication: DRUG USE FOR UNKNOWN INDICATION
  2. LORAZEPAM [Suspect]
     Indication: DRUG USE FOR UNKNOWN INDICATION
  3. HYDROCHLOROTHIAZIDE [Suspect]
     Indication: DRUG USE FOR UNKNOWN INDICATION
  4. LISINOPRIL [Suspect]
     Indication: DRUG USE FOR UNKNOWN INDICATION
  5. ISOSORBIDE (WATSON LABORATORIES)(ISOSORBIDE DINITRATE) UNKNOWN [Suspect]
     Indication: DRUG USE FOR UNKNOWN INDICATION
  6. SU-011,248 (SUNITINIB MALATE) () [Suspect]
     Indication: SQUAMOUS CELL CARCINOMA
     Dosage: 50 MG OD 4 WEEKS ON 2 WEEKS OFF, ORAL
     Route: 048
     Dates: start: 20070221
  7. DIGOXIN [Suspect]
     Indication: DRUG USE FOR UNKNOWN INDICATION
  8. FOSAMAX [Suspect]
  9. LEVOTHYROXINE SODIUM [Suspect]
  10. LIPITOR [Suspect]
  11. OMEPRAZOLE [Suspect]
  12. CORTISONE ACETATE [Suspect]
     Dates: start: 20070219
  13. GLUCOSAMINE(GLUCOSAMINE) [Suspect]
  14. MULTIVITAMINS(RIBOFLAVIN, RETINOL, PANTHENOL, NICOTINAMIDE, ERGOCALCIF [Suspect]
  15. GLYCEROL 2.6% [Suspect]
  16. OMEGA 3(FISH OIL) [Suspect]
  17. BIOTENE(GLUCOSE OXIDASE) [Suspect]
  18. OSCAL(CALCIUM CARBONATE) [Suspect]

REACTIONS (4)
  - ABDOMINAL PAIN [None]
  - CHOLECYSTITIS [None]
  - FATIGUE [None]
  - VOMITING [None]
